FAERS Safety Report 26052289 (Version 4)
Quarter: 2025Q4

REPORT INFORMATION
  Report Type: Spontaneous
  Country: US (occurrence: US)
  Receive Date: 20251117
  Receipt Date: 20251219
  Transmission Date: 20260118
  Serious: No
  Sender: LUPIN
  Company Number: US-LUPIN PHARMACEUTICALS INC.-2025-10305

PATIENT
  Age: 58 Year
  Weight: 88.435 kg

DRUGS (1)
  1. SERTRALINE HYDROCHLORIDE [Suspect]
     Active Substance: SERTRALINE HYDROCHLORIDE
     Indication: Anxiety
     Dosage: 12.5 MILLIGRAM, BID (IN THE MORNING AND IN THE EVENING)
     Route: 065

REACTIONS (5)
  - Tachyphrenia [Unknown]
  - Merycism [Unknown]
  - Anxiety [Unknown]
  - Feeling jittery [Unknown]
  - Treatment noncompliance [Unknown]
